FAERS Safety Report 17945501 (Version 3)
Quarter: 2022Q2

REPORT INFORMATION
  Report Type: Spontaneous
  Country: US (occurrence: US)
  Receive Date: 20200625
  Receipt Date: 20220408
  Transmission Date: 20220721
  Serious: Yes (Death, Other)
  Sender: FDA-Public Use
  Company Number: US-GLAXOSMITHKLINE-US2020GSK102786

PATIENT
  Age: 62 Year
  Sex: Male

DRUGS (3)
  1. ZANTAC [Suspect]
     Active Substance: RANITIDINE HYDROCHLORIDE
     Indication: Product used for unknown indication
     Dosage: UNK, QD
     Route: 048
     Dates: start: 2000
  2. ZANTAC [Suspect]
     Active Substance: RANITIDINE HYDROCHLORIDE
     Indication: Dyspepsia
     Dosage: 75 MG, QD
     Route: 065
     Dates: start: 2000, end: 2019
  3. ZANTAC [Suspect]
     Active Substance: RANITIDINE HYDROCHLORIDE
     Dosage: 150 MG, QD
     Route: 065
     Dates: start: 2000, end: 2019

REACTIONS (13)
  - Hepatocellular carcinoma [Fatal]
  - Cellulitis [Fatal]
  - Sepsis [Fatal]
  - Hepatic cancer [Unknown]
  - Cholecystitis chronic [Unknown]
  - Hepatic cirrhosis [Unknown]
  - Malignant ascites [Unknown]
  - Hepatic steatosis [Unknown]
  - Hepatic lesion [Unknown]
  - Biliary dyskinesia [Unknown]
  - Hepatic mass [Unknown]
  - Hepatic cyst [Unknown]
  - Liver disorder [Unknown]

NARRATIVE: CASE EVENT DATE: 20190401
